FAERS Safety Report 12482211 (Version 1)
Quarter: 2016Q2

REPORT INFORMATION
  Report Type: Spontaneous
  Country: US (occurrence: US)
  Receive Date: 20160620
  Receipt Date: 20160620
  Transmission Date: 20160815
  Serious: Yes (Life-Threatening, Hospitalization)
  Sender: FDA-Public Use
  Company Number: US-BAYER-2016-113745

PATIENT
  Age: 59 Year
  Sex: Female

DRUGS (1)
  1. ACETYLSALICYLIC ACID (} 100 MG) [Suspect]
     Active Substance: ASPIRIN

REACTIONS (6)
  - Cerebral haemorrhage [None]
  - Immune thrombocytopenic purpura [None]
  - Petechiae [None]
  - Mouth haemorrhage [None]
  - Gastrointestinal haemorrhage [None]
  - Subdural haematoma [None]
